FAERS Safety Report 20574966 (Version 1)
Quarter: 2022Q1

REPORT INFORMATION
  Report Type: Spontaneous
  Country: CA (occurrence: CA)
  Receive Date: 20220310
  Receipt Date: 20220310
  Transmission Date: 20220424
  Serious: Yes (Other)
  Sender: FDA-Public Use
  Company Number: CA-BAXTER-2022BAX004900

PATIENT
  Age: 2 Month

DRUGS (6)
  1. IFEX [Suspect]
     Active Substance: IFOSFAMIDE
     Indication: Rhabdoid tumour
     Dosage: DOSAGE FORM: NOT REPORTED
     Route: 065
  2. CYCLOPHOSPHAMIDE [Suspect]
     Active Substance: CYCLOPHOSPHAMIDE
     Indication: Rhabdoid tumour
     Dosage: DOSAGE FORM- NOT SPECIFIED
     Route: 065
  3. CARBOPLATIN [Suspect]
     Active Substance: CARBOPLATIN
     Indication: Rhabdoid tumour
     Dosage: DOSAGE FORM- SOLUTION INTRAVENOUS
     Route: 065
  4. DOXORUBICIN [Suspect]
     Active Substance: DOXORUBICIN
     Indication: Rhabdoid tumour
     Dosage: DOSAGE FORM- SOLUTION INTRAVENOUS
     Route: 065
  5. ETOPOSIDE [Suspect]
     Active Substance: ETOPOSIDE
     Indication: Rhabdoid tumour
     Dosage: DOSAGE FORM- NOT SPECIFIED
     Route: 065
  6. VINCRISTINE [Suspect]
     Active Substance: VINCRISTINE
     Indication: Rhabdoid tumour
     Dosage: DOSAGE FORM: NOT REPORTED
     Route: 065

REACTIONS (3)
  - Product use in unapproved indication [Unknown]
  - Malignant neoplasm progression [Unknown]
  - Rhabdoid tumour [Unknown]
